FAERS Safety Report 7625366-0 (Version None)
Quarter: 2011Q3

REPORT INFORMATION
  Report Type: 
  Country: None (occurrence: None)
  Receive Date: 20110721
  Receipt Date: 20110718
  Transmission Date: 20111222
  Serious: Yes (Other)
  Sender: FDA-Public Use
  Company Number: US-BAYER-2011-062520

PATIENT
  Age: 30 Year
  Sex: Female

DRUGS (2)
  1. YASMIN [Suspect]
     Dosage: UNK
     Dates: start: 20050901, end: 20071101
  2. YAZ [Suspect]
     Dosage: UNK
     Dates: start: 20050901, end: 20071101

REACTIONS (2)
  - INJURY [None]
  - CHOLECYSTECTOMY [None]
